FAERS Safety Report 8175949 (Version 2)
Quarter: 2013Q3

REPORT INFORMATION
  Report Type: Report from Study
  Country: CA (occurrence: CA)
  Receive Date: 20111011
  Receipt Date: 20130920
  Transmission Date: 20140515
  Serious: Yes (Other)
  Sender: FDA-Public Use
  Company Number: PHHY2011CA88683

PATIENT
  Sex: Female

DRUGS (18)
  1. ACLASTA [Suspect]
     Indication: OSTEOPOROSIS
     Dosage: 5 MG
     Route: 042
     Dates: start: 20100805
  2. ACLASTA [Suspect]
     Dosage: 5 MG
     Route: 042
     Dates: start: 20110914
  3. ACLASTA [Suspect]
     Dosage: 5 MG
     Route: 042
     Dates: start: 20120926
  4. XOLAIR [Concomitant]
     Dosage: UNK UKN, UNK
  5. VENTOLIN [Concomitant]
     Dosage: UNK UKN, UNK
  6. OXEZE [Concomitant]
     Dosage: UNK UKN, UNK
  7. SYMBICORT [Concomitant]
     Dosage: UNK UKN, UNK
  8. ALVESCO [Concomitant]
     Dosage: UNK UKN, UNK
  9. SPIRIVA [Concomitant]
     Dosage: UNK UKN, UNK
  10. PREDNISONE [Concomitant]
     Dosage: UNK UKN, UNK
  11. CALCIUM [Concomitant]
     Dosage: UNK UKN, UNK
  12. VITAMIN D [Concomitant]
     Dosage: UNK UKN, UNK
  13. NEXIUM [Concomitant]
     Dosage: UNK UKN, UNK
  14. CLONAZEPAM [Concomitant]
     Dosage: UNK UKN, UNK
  15. VERAPAMIL [Concomitant]
     Dosage: UNK UKN, UNK
  16. LACTULOSE [Concomitant]
     Dosage: UNK UKN, UNK
  17. TERIZIDONE [Concomitant]
     Dosage: UNK UKN, UNK
  18. RASILEZ (ALISKIREN) [Concomitant]
     Dosage: UNK UKN, UNK

REACTIONS (5)
  - Rib fracture [Recovering/Resolving]
  - Foot fracture [Recovering/Resolving]
  - Cough [Unknown]
  - Influenza like illness [Unknown]
  - Pain [Unknown]
